FAERS Safety Report 22315816 (Version 1)
Quarter: 2023Q2

REPORT INFORMATION
  Report Type: Spontaneous
  Country: US (occurrence: US)
  Receive Date: 20230512
  Receipt Date: 20230512
  Transmission Date: 20230722
  Serious: No
  Sender: FDA-Public Use
  Company Number: US-BAUSCH-BL-2022-019418

PATIENT
  Age: 40 Year
  Sex: Female
  Weight: 49.486 kg

DRUGS (1)
  1. LOTEMAX [Suspect]
     Active Substance: LOTEPREDNOL ETABONATE
     Indication: Dry eye
     Dosage: 1 UNSPECIFIED DOSE QD
     Route: 047

REACTIONS (2)
  - Ill-defined disorder [Recovering/Resolving]
  - Therapy interrupted [Unknown]
